APPROVED DRUG PRODUCT: FENTANYL CITRATE
Active Ingredient: FENTANYL CITRATE
Strength: EQ 0.8MG BASE
Dosage Form/Route: TABLET;BUCCAL, SUBLINGUAL
Application: A206329 | Product #006
Applicant: DR REDDYS LABORATORIES SA
Approved: Aug 22, 2022 | RLD: No | RS: No | Type: DISCN